FAERS Safety Report 8970318 (Version 1)
Quarter: 2012Q4

REPORT INFORMATION
  Report Type: 
  Country: US (occurrence: US)
  Receive Date: 20121218
  Receipt Date: 20121218
  Transmission Date: 20130627
  Serious: No
  Sender: FDA-Public Use
  Company Number: US-BRISTOL-MYERS SQUIBB COMPANY-17041898

PATIENT
  Age: 83 Year
  Sex: Female
  Weight: 65.76 kg

DRUGS (2)
  1. ABILIFY [Suspect]
  2. COUMADIN [Suspect]
     Indication: THROMBOSIS

REACTIONS (1)
  - Skin discolouration [Unknown]
